FAERS Safety Report 10367340 (Version 1)
Quarter: 2014Q3

REPORT INFORMATION
  Report Type: Spontaneous
  Country: IN (occurrence: IN)
  Receive Date: 20140807
  Receipt Date: 20140807
  Transmission Date: 20150326
  Serious: Yes (Other)
  Sender: FDA-Public Use
  Company Number: IN-SUN PHARMACEUTICAL INDUSTRIES LTD-2014SUN01735

PATIENT

DRUGS (2)
  1. TOPIRAMATE TABS 25MG [Suspect]
     Active Substance: TOPIRAMATE
     Indication: CONVULSION
     Dosage: 37.5 MG/D
     Route: 065
  2. VALPROIC ACID SYRUP 250 MG/5 ML [Suspect]
     Active Substance: VALPROIC ACID
     Indication: CONVULSION
     Dosage: 300 MG/DAY
     Route: 065

REACTIONS (5)
  - Respiration abnormal [None]
  - No therapeutic response [None]
  - Lethargy [None]
  - Lipid metabolism disorder [None]
  - Metabolic disorder [Recovered/Resolved]
